FAERS Safety Report 7832600-0 (Version None)
Quarter: 2011Q4

REPORT INFORMATION
  Report Type: 
  Country: None (occurrence: None)
  Receive Date: 20111024
  Receipt Date: 20111013
  Transmission Date: 20120403
  Serious: No
  Sender: FDA-Public Use
  Company Number: US-BIOGENIDEC-2010BI011726

PATIENT
  Age: 46 Year
  Sex: Female

DRUGS (2)
  1. TYSABRI [Suspect]
     Indication: MULTIPLE SCLEROSIS
     Route: 042
     Dates: start: 20090407, end: 20100323
  2. TYSABRI [Suspect]
     Route: 042
     Dates: start: 20100622, end: 20110825

REACTIONS (2)
  - MUSCULAR WEAKNESS [None]
  - MULTIPLE SCLEROSIS [None]
